FAERS Safety Report 8171262-2 (Version None)
Quarter: 2012Q1

REPORT INFORMATION
  Report Type: 
  Country: None (occurrence: None)
  Receive Date: 20120228
  Receipt Date: 20120213
  Transmission Date: 20120608
  Serious: Yes (Hospitalization, Other)
  Sender: FDA-Public Use
  Company Number: US-WATSON-2012-02568

PATIENT
  Age: 48 Year
  Sex: Male
  Weight: 80 kg

DRUGS (1)
  1. BACLOFEN [Suspect]
     Indication: BACK INJURY
     Dosage: UNK
     Route: 065

REACTIONS (9)
  - COMA [None]
  - GRAND MAL CONVULSION [None]
  - HYPOTONIA [None]
  - RESPIRATORY DEPRESSION [None]
  - FAECAL INCONTINENCE [None]
  - APNOEA [None]
  - OVERDOSE [None]
  - VOMITING [None]
  - URINARY INCONTINENCE [None]
